FAERS Safety Report 7517059-5 (Version None)
Quarter: 2011Q2

REPORT INFORMATION
  Report Type: 
  Country: None (occurrence: None)
  Receive Date: 20110526
  Receipt Date: 20110526
  Transmission Date: 20111010
  Serious: Yes (Other)
  Sender: FDA-Public Use
  Company Number: None

PATIENT
  Age: 62 Year
  Sex: Female

DRUGS (4)
  1. EVISTA [Concomitant]
  2. CALCIUM 600+D [Concomitant]
  3. WOMENS VIT [Concomitant]
  4. RECLAST [Suspect]
     Dosage: IV RIGHT AC
     Route: 042

REACTIONS (2)
  - HYPOAESTHESIA [None]
  - PAIN [None]
